FAERS Safety Report 25015663 (Version 1)
Quarter: 2025Q1

REPORT INFORMATION
  Report Type: Spontaneous
  Country: GB (occurrence: GB)
  Receive Date: 20250227
  Receipt Date: 20250227
  Transmission Date: 20250409
  Serious: No
  Sender: ALKEM
  Company Number: None

PATIENT
  Sex: Male

DRUGS (1)
  1. FINASTERIDE [Suspect]
     Active Substance: FINASTERIDE
     Indication: Product used for unknown indication
     Route: 065

REACTIONS (5)
  - Dry skin [Not Recovered/Not Resolved]
  - Skin injury [Not Recovered/Not Resolved]
  - Onychomalacia [Not Recovered/Not Resolved]
  - Nail atrophy [Not Recovered/Not Resolved]
  - Skin laxity [Not Recovered/Not Resolved]
